FAERS Safety Report 16564045 (Version 10)
Quarter: 2020Q3

REPORT INFORMATION
  Report Type: Spontaneous
  Country: JP (occurrence: JP)
  Receive Date: 20190712
  Receipt Date: 20200930
  Transmission Date: 20201102
  Serious: Yes (Life-Threatening, Hospitalization, Other)
  Sender: FDA-Public Use
  Company Number: JP-AMGEN-JPNSP2019099850

PATIENT
  Age: 69 Year
  Sex: Male
  Weight: 64.4 kg

DRUGS (29)
  1. ALOSENN [SENNOSIDE A+B] [Concomitant]
     Indication: CONSTIPATION
     Dosage: 2 GRAM, PRN
     Route: 065
  2. FESIN [SACCHARATED IRON OXIDE] [Concomitant]
     Active Substance: IRON SUCROSE
     Dosage: 40 MILLIGRAM, QWK
     Route: 042
     Dates: start: 20190712, end: 20190830
  3. EPOETIN ALFA [Concomitant]
     Active Substance: ERYTHROPOIETIN
     Dosage: 7500 INTERNATIONAL UNIT, QWK
     Route: 065
     Dates: start: 20191011, end: 20191122
  4. REMITCH [Concomitant]
     Active Substance: NALFURAFINE HYDROCHLORIDE
     Dosage: 2.5 MICROGRAM, QD
     Route: 048
  5. AMLODIPINE [Concomitant]
     Active Substance: AMLODIPINE BESYLATE
     Dosage: 5 MILLIGRAM, Q12H (EVENING; 5 MG (DIALYSIS DATE), MORNING AND EVENING; 5 MG, Q12H (NON?DIALYSIS DATE
     Route: 048
  6. EURODIN [ESTAZOLAM] [Concomitant]
     Active Substance: ESTAZOLAM
     Dosage: 2 MILLIGRAM, QD
     Route: 048
  7. PURSENNID [SENNOSIDE A+B CALCIUM] [Concomitant]
     Active Substance: SENNOSIDES A AND B
     Dosage: 48 MILLIGRAM, QD,  (DIALYSIS DATE AND SATURDAY)
     Route: 048
  8. CARDENALIN [Concomitant]
     Active Substance: DOXAZOSIN MESYLATE
     Dosage: MORNING; 2 MG (NON?DIALYSIS DATE), EVENING; 2 MG
     Route: 048
  9. RENAGEL [Concomitant]
     Active Substance: SEVELAMER HYDROCHLORIDE
     Dosage: 750 MILLIGRAM, Q8H
     Route: 048
  10. MAXACALCITOL [Concomitant]
     Active Substance: MAXACALCITOL
     Dosage: 5 MICROGRAM, 3 TIMES/WK
     Route: 042
     Dates: start: 20190708
  11. MAXACALCITOL [Concomitant]
     Active Substance: MAXACALCITOL
     Dosage: 5 MICROGRAM, 2 TIMES/WK
     Route: 042
  12. PARSABIV [Suspect]
     Active Substance: ETELCALCETIDE HYDROCHLORIDE
     Indication: HYPERPARATHYROIDISM SECONDARY
     Dosage: 2.5 MILLIGRAM, 3 TIMES/WK
     Route: 042
     Dates: start: 20180725
  13. NESP [Concomitant]
     Active Substance: DARBEPOETIN ALFA
     Dosage: 20 MICROGRAM, QWK
     Route: 065
  14. EPOETIN ALFA [Concomitant]
     Active Substance: ERYTHROPOIETIN
     Dosage: 9000 INTERNATIONAL UNIT, QWK
     Route: 065
     Dates: start: 20181217, end: 20191009
  15. ARTIST [Concomitant]
     Active Substance: CARVEDILOL
     Dosage: 10 MILLIGRAM, Q12H
     Route: 048
  16. OXAROL [Concomitant]
     Active Substance: MAXACALCITOL
     Dosage: 5 MICROGRAM, 2 TIMES/WK
     Route: 042
  17. NESP [Concomitant]
     Active Substance: DARBEPOETIN ALFA
     Dosage: 60 MICROGRAM, QWK
     Route: 065
  18. GLAKAY [Concomitant]
     Active Substance: MENATETRENONE
     Dosage: 15 MILLIGRAM, Q8H
     Route: 048
  19. LONGES [Concomitant]
     Active Substance: LISINOPRIL
     Dosage: 10 MILLIGRAM, QD
     Route: 048
  20. FOSRENOL [Concomitant]
     Active Substance: LANTHANUM CARBONATE
     Dosage: 750 MILLIGRAM, Q8H
     Route: 048
  21. OXAROL [Concomitant]
     Active Substance: MAXACALCITOL
     Dosage: 5 MICROGRAM, 3 TIMES/WK
     Route: 042
     Dates: start: 20180530, end: 20190703
  22. OXAROL [Concomitant]
     Active Substance: MAXACALCITOL
     Dosage: 5 MICROGRAM, 3 TIMES/WK
     Route: 042
     Dates: start: 20190708
  23. LANTHANUM CARBONATE OD [Concomitant]
     Dosage: 500 MILLIGRAM, Q8H
     Route: 048
  24. GULUCOLIN S [ENOXOLONE;GLYCINE;MERCAPTAMINE HYDROCHLORIDE] [Concomitant]
     Dosage: 20 MILLILITER, 3 TIMES/WK
     Route: 042
  25. NESP [Concomitant]
     Active Substance: DARBEPOETIN ALFA
     Dosage: 40 MICROGRAM, QWK
     Route: 065
     Dates: end: 20181214
  26. NESP [Concomitant]
     Active Substance: DARBEPOETIN ALFA
     Dosage: 40 MICROGRAM, QWK
     Route: 065
  27. EPOETIN ALFA [Concomitant]
     Active Substance: ERYTHROPOIETIN
     Dosage: 9000 INTERNATIONAL UNIT, QWK
     Route: 065
     Dates: start: 20191125, end: 20200207
  28. NEXIUM [Concomitant]
     Active Substance: ESOMEPRAZOLE MAGNESIUM
     Dosage: 20 MILLIGRAM, QD
     Route: 048
  29. AMITIZA [Concomitant]
     Active Substance: LUBIPROSTONE
     Dosage: 24 MICROGRAM, Q12H
     Route: 048

REACTIONS (9)
  - Oesophageal neoplasm [Not Recovered/Not Resolved]
  - Renal neoplasm [Recovering/Resolving]
  - Herpes zoster [Recovered/Resolved]
  - Mass [Recovered/Resolved]
  - Pruritus [Recovered/Resolved]
  - Hepatic neoplasm [Recovering/Resolving]
  - Enterocolitis [Recovered/Resolved]
  - Dyspepsia [Recovering/Resolving]
  - Lung neoplasm [Recovered/Resolved]

NARRATIVE: CASE EVENT DATE: 20180728
